FAERS Safety Report 13199586 (Version 1)
Quarter: 2017Q1

REPORT INFORMATION
  Report Type: Spontaneous
  Country: US (occurrence: US)
  Receive Date: 20170208
  Receipt Date: 20170208
  Transmission Date: 20170428
  Serious: No
  Sender: FDA-Public Use
  Company Number: US-TEVA-737100USA

PATIENT

DRUGS (1)
  1. COPAXONE [Suspect]
     Active Substance: GLATIRAMER ACETATE

REACTIONS (6)
  - Fatigue [Unknown]
  - Chills [Unknown]
  - Nasopharyngitis [Unknown]
  - Hyperhidrosis [Unknown]
  - Asthenia [Unknown]
  - Influenza [Unknown]
